FAERS Safety Report 23934559 (Version 2)
Quarter: 2025Q3

REPORT INFORMATION
  Report Type: Report from Study
  Country: ZA (occurrence: ZA)
  Receive Date: 20240603
  Receipt Date: 20250806
  Transmission Date: 20251020
  Serious: Yes (Hospitalization)
  Sender: ABBVIE
  Company Number: ZA-ABBOTT-2024A-1382284

PATIENT
  Age: 71 Year
  Sex: Female

DRUGS (35)
  1. CREON [Suspect]
     Active Substance: PANCRELIPASE AMYLASE\PANCRELIPASE LIPASE\PANCRELIPASE PROTEASE
     Indication: Pancreatic failure
     Dosage: 150 MG TAKE ONE THREE TIMES A DAY, CREON 10000 150 MG OF PANCREATIN
     Route: 048
  2. FEXOFENADINE [Concomitant]
     Active Substance: FEXOFENADINE HYDROCHLORIDE
     Indication: Hypersensitivity
  3. FEXOFENADINE [Concomitant]
     Active Substance: FEXOFENADINE HYDROCHLORIDE
     Indication: Hypersensitivity
  4. Adco linctopent [Concomitant]
     Indication: Menopause
  5. PALEXIA [Concomitant]
     Active Substance: TAPENTADOL HYDROCHLORIDE
     Indication: Pain
     Dosage: 100 MG TAKE ONE TABLET TWICE A DAY?PALEXIA SR TAPENTADOL
     Route: 048
  6. ACETAMINOPHEN\ORPHENADRINE CITRATE [Concomitant]
     Active Substance: ACETAMINOPHEN\ORPHENADRINE CITRATE
     Indication: Product used for unknown indication
  7. MONTELUKAST SODIUM [Concomitant]
     Active Substance: MONTELUKAST SODIUM
     Indication: Asthma
     Dosage: 10 MG TAKE ONE TABLET AT NIGHT?MONTEFLO MONTELUKAST
     Route: 048
  8. Stilpane [Concomitant]
     Indication: Pain
     Route: 048
  9. Allergex [Concomitant]
     Indication: Hypersensitivity
  10. ZOLPIDEM [Concomitant]
     Active Substance: ZOLPIDEM TARTRATE
     Indication: Sleep disorder
     Route: 048
  11. Allergex [Concomitant]
     Indication: Product used for unknown indication
  12. ACETAMINOPHEN\CAFFEINE\CODEINE PHOSPHATE\MEPROBAMATE [Concomitant]
     Active Substance: ACETAMINOPHEN\CAFFEINE\CODEINE PHOSPHATE\MEPROBAMATE
     Indication: Pain
     Route: 048
  13. ZOLPIDEM TARTRATE [Concomitant]
     Active Substance: ZOLPIDEM TARTRATE
     Indication: Insomnia
     Route: 048
  14. Lessmusec [Concomitant]
     Indication: Product used for unknown indication
     Dosage: 375 MG TAKE TWO CAPSULES THREE TIMES A DAY?LESSMUSEC CARBOCISTEINE
     Route: 048
  15. Stafoban [Concomitant]
     Indication: Product used for unknown indication
     Route: 048
  16. CIPROFLOXACIN\DEXAMETHASONE [Concomitant]
     Active Substance: CIPROFLOXACIN\DEXAMETHASONE
     Indication: Product used for unknown indication
     Dosage: INSTILL FOUR DROPS TWICE DAILY?UNIT DOSE 4 DROPS CIPROFLOXACIN 3MG, DEXAMETHASONE 1MG/ML
  17. FLAVOXATE [Concomitant]
     Active Substance: FLAVOXATE
     Indication: Hypertonic bladder
  18. Sinumax allergy [Concomitant]
     Indication: Product used for unknown indication
     Route: 045
  19. Dicloflam [Concomitant]
     Indication: Product used for unknown indication
  20. Florin [Concomitant]
     Indication: Product used for unknown indication
     Dosage: 250 MG TAKE ONE TWICE A DAY
     Route: 048
  21. POTASSIUM CHLORIDE [Concomitant]
     Active Substance: POTASSIUM CHLORIDE
     Indication: Hypokalaemia
     Dosage: 600 MG TAKE TWO TABLETS DAILY FOR ONE WEEK?PLENISH-K SR POTASSIUM CHLORIDE
     Route: 048
  22. BETAHISTINE HYDROCHLORIDE [Concomitant]
     Active Substance: BETAHISTINE HYDROCHLORIDE
     Indication: Vertigo
     Dosage: 24 MG TAKE ONE TABLET TWICE A DAY?HIDRIST BETAHISTINE
     Route: 048
  23. DIETARY SUPPLEMENT\HERBALS [Concomitant]
     Active Substance: DIETARY SUPPLEMENT\HERBALS
     Indication: Product used for unknown indication
     Dosage: TAKE ONE TABLET THREE TIMES A DAY?SINUPRET FORTE NATIVE DRY EXTRACT
     Route: 048
  24. Flospasm [Concomitant]
     Indication: Hypertonic bladder
  25. METRONIDAZOLE [Concomitant]
     Active Substance: METRONIDAZOLE
     Indication: Product used for unknown indication
     Dosage: 400 MG TAKE ONE TABLET THREE TIMES A DAY?ADCO METRONIDAZOLE METRONIDAZOLE
     Route: 048
  26. Sandoz co amoxyclav [Concomitant]
     Indication: Product used for unknown indication
     Dosage: 1000 MG TAKE ONE TABLET TWICE A DAY
     Route: 048
  27. FLUTICASONE FUROATE [Concomitant]
     Active Substance: FLUTICASONE FUROATE
     Indication: Hypersensitivity
     Route: 045
  28. FLUTICASONE FUROATE [Concomitant]
     Active Substance: FLUTICASONE FUROATE
     Indication: Hypersensitivity
     Route: 045
  29. DAPAGLIFLOZIN [Concomitant]
     Active Substance: DAPAGLIFLOZIN
     Indication: Diabetes mellitus
     Dosage: 5 MG TAKE ONE TABLET DAILY?FORXIGA DAPAGLIFLOZIN
     Route: 048
  30. CATAFLAM [Concomitant]
     Active Substance: DICLOFENAC POTASSIUM
     Indication: Product used for unknown indication
  31. Allergex [Concomitant]
     Indication: Hypersensitivity
  32. CIPROFLOXACIN\DEXAMETHASONE [Concomitant]
     Active Substance: CIPROFLOXACIN\DEXAMETHASONE
     Indication: Product used for unknown indication
     Dosage: INSTILL FOUR DROPS TWICE DAILY?UNIT DOSE 4 DROPS?XINDEX CIPROFLOXACIN 3MG,  DEXAMETHASONE  1MG/ML
  33. NEUROBION [Concomitant]
     Active Substance: CYANOCOBALAMIN\PYRIDOXINE\THIAMINE
     Indication: Product used for unknown indication
  34. Dis chem paracetamol [Concomitant]
     Indication: Product used for unknown indication
     Dosage: 500 MG TAKE TWO TABLETS SIX HOURLY?DIS-CHEM PARACETAMOL PARACETAMO
     Route: 048
  35. VAGIFEM [Concomitant]
     Active Substance: ESTRADIOL
     Indication: Menopause

REACTIONS (2)
  - Surgery [Unknown]
  - Gait inability [Unknown]
